FAERS Safety Report 12837099 (Version 1)
Quarter: 2016Q4

REPORT INFORMATION
  Report Type: Spontaneous
  Country: DE (occurrence: DE)
  Receive Date: 20161011
  Receipt Date: 20161011
  Transmission Date: 20170207
  Serious: Yes (Other)
  Sender: FDA-Public Use
  Company Number: GXKR2016DE004660

PATIENT

DRUGS (6)
  1. PROTAPHANE [Concomitant]
     Active Substance: INSULIN HUMAN
     Indication: GESTATIONAL DIABETES
     Dosage: 24 [IE/D ]/ DOSAGE VARYING BETWEEN 6 AND 24 IE DAILY (IN THE EVENING)
     Route: 058
     Dates: start: 20151216, end: 20160511
  2. PRESINOL [Concomitant]
     Active Substance: METHYLDOPA
     Indication: PRE-ECLAMPSIA
     Dosage: 375 [MG/D ]/ OR ^ONLY^ GESTATIONAL HYPERTENSION
     Route: 048
     Dates: start: 20160112, end: 20160512
  3. THYRONAJOD [Concomitant]
     Active Substance: LEVOTHYROXINE SODIUM\POTASSIUM IODIDE
     Indication: THYROID HORMONE REPLACEMENT THERAPY
     Dosage: 125 [?G/D ]/ SINCE 1999
     Route: 048
     Dates: start: 20150820, end: 20160512
  4. PREDNISOLON [Suspect]
     Active Substance: PREDNISOLONE
     Indication: SPONDYLOARTHROPATHY
     Dosage: 40 MG/D / SINCE 2005; HLA B27 ASSOCIATED ARTHRITIS, DOSAGE VARYING BETWEEN 2.5 AND 40 MG/D
     Route: 048
     Dates: start: 20150820
  5. PROPESS [Concomitant]
     Active Substance: DINOPROSTONE
     Indication: LABOUR INDUCTION
     Dosage: 20 [MG/D ]
     Route: 067
     Dates: start: 20160512, end: 20160512
  6. FOLIO                              /00349401/ [Concomitant]
     Active Substance: CYANOCOBALAMIN\FOLIC ACID
     Indication: PROPHYLAXIS OF NEURAL TUBE DEFECT
     Dosage: 0.4 [MG/D ]
     Route: 048
     Dates: start: 20150820, end: 20160515

REACTIONS (2)
  - Gestational diabetes [Recovered/Resolved]
  - Pre-eclampsia [Recovered/Resolved]
